FAERS Safety Report 5345797-1 (Version None)
Quarter: 2007Q2

REPORT INFORMATION
  Report Type: 
  Country: None (occurrence: None)
  Receive Date: 20070601
  Receipt Date: 20070523
  Transmission Date: 20071010
  Serious: Yes (Death, Hospitalization)
  Sender: FDA-Public Use
  Company Number: 2007US001159

PATIENT
  Age: 61 Year
  Sex: Male

DRUGS (9)
  1. AMBISOME [Suspect]
     Indication: DRUG USE FOR UNKNOWN INDICATION
     Dates: start: 20001019, end: 20001023
  2. GANCICLOVIR [Suspect]
     Indication: DRUG USE FOR UNKNOWN INDICATION
     Dosage: 250 MG, UNK, IV NOS
     Route: 042
     Dates: start: 20001017, end: 20001026
  3. URSO FALK [Concomitant]
  4. PROGRAF [Concomitant]
  5. MERONEM (MEROPENEM) [Concomitant]
  6. PREDNISOLONE [Concomitant]
  7. CEFTAZIDIME SODIUM [Concomitant]
  8. LOSEC (OMEPRAZOLE SODIUM) [Concomitant]
  9. VANCOMYCIN HYDROCHLORIDE [Concomitant]

REACTIONS (8)
  - CHOLANGITIS [None]
  - COMPLICATIONS OF TRANSPLANTED LIVER [None]
  - CONDITION AGGRAVATED [None]
  - HEPATIC FAILURE [None]
  - HEPATIC ISCHAEMIA [None]
  - HYPOTENSION [None]
  - METABOLIC ACIDOSIS [None]
  - TRANSPLANT FAILURE [None]
